FAERS Safety Report 9884560 (Version 1)
Quarter: 2014Q1

REPORT INFORMATION
  Report Type: Other
  Country: GB (occurrence: GB)
  Receive Date: 20140210
  Receipt Date: 20140210
  Transmission Date: 20141002
  Serious: Yes (Life-Threatening, Other)
  Sender: FDA-Public Use
  Company Number: GB-TAKEDA-2014TEU001093

PATIENT
  Age: 79 Year
  Sex: Male
  Weight: 80 kg

DRUGS (9)
  1. PIOGLITAZONE [Suspect]
     Indication: DIABETES MELLITUS
     Dosage: 15 MG, QD
     Route: 048
     Dates: start: 20110902, end: 20130911
  2. SIMVASTATIN [Concomitant]
  3. RAMIPRIL [Concomitant]
  4. OMEPRAZOLE [Concomitant]
  5. METFORMIN [Concomitant]
     Dosage: 1 G, BID
     Dates: start: 201108
  6. GLICLAZIDE [Concomitant]
     Dosage: 160 MG, BID
     Dates: start: 201108
  7. DIPYRIDAMOLE [Concomitant]
  8. BEZAFIBRATE [Concomitant]
  9. ASPIRIN [Concomitant]

REACTIONS (2)
  - Haematuria [Unknown]
  - Bladder cancer [Unknown]
